FAERS Safety Report 7376092-7 (Version None)
Quarter: 2011Q1

REPORT INFORMATION
  Report Type: 
  Country: None (occurrence: None)
  Receive Date: 20110325
  Receipt Date: 20110317
  Transmission Date: 20110831
  Serious: Yes (Hospitalization, Other)
  Sender: FDA-Public Use
  Company Number: US-BRISTOL-MYERS SQUIBB COMPANY-15614829

PATIENT
  Age: 66 Year
  Sex: Female

DRUGS (3)
  1. ARIXTRA [Suspect]
     Indication: PULMONARY EMBOLISM
     Route: 058
     Dates: start: 20100627, end: 20100701
  2. LYRICA [Concomitant]
     Dates: start: 20100114
  3. HYDREA [Suspect]
     Indication: POLYCYTHAEMIA VERA
     Route: 048
     Dates: start: 20100702, end: 20100712

REACTIONS (6)
  - HAEMATOMA [None]
  - PULMONARY EMBOLISM [None]
  - ANAEMIA [None]
  - HYPERKALAEMIA [None]
  - SCIATICA [None]
  - HYPONATRAEMIA [None]
